FAERS Safety Report 10512706 (Version 1)
Quarter: 2014Q4

REPORT INFORMATION
  Report Type: Report from Study
  Country: NL (occurrence: NL)
  Receive Date: 20141012
  Receipt Date: 20141012
  Transmission Date: 20150528
  Serious: Yes (Death)
  Sender: FDA-Public Use
  Company Number: NL-AMGEN-NLDSL2014077804

PATIENT
  Age: 61 Year
  Sex: Male

DRUGS (1)
  1. XGEVA [Suspect]
     Active Substance: DENOSUMAB
     Indication: PROPHYLAXIS
     Dosage: 70 MG/ML, Q4WK
     Route: 058
     Dates: start: 20140311, end: 20141007

REACTIONS (1)
  - Death [Fatal]

NARRATIVE: CASE EVENT DATE: 20141007
